FAERS Safety Report 20867476 (Version 1)
Quarter: 2022Q2

REPORT INFORMATION
  Report Type: Spontaneous
  Country: US (occurrence: None)
  Receive Date: 20220524
  Receipt Date: 20220524
  Transmission Date: 20220721
  Serious: Yes (Hospitalization)
  Sender: FDA-Public Use
  Company Number: None

PATIENT
  Sex: Male
  Weight: 49.4 kg

DRUGS (7)
  1. CYCLOPHOSPHAMIDE [Suspect]
     Active Substance: CYCLOPHOSPHAMIDE
     Dates: end: 20210220
  2. CYTARABINE [Suspect]
     Active Substance: CYTARABINE
     Dates: end: 20210218
  3. DOXORUBICIN HYDROCHLORIDE [Suspect]
     Active Substance: DOXORUBICIN HYDROCHLORIDE
     Dates: end: 20210221
  4. MESNA [Suspect]
     Active Substance: MESNA
     Dates: end: 20210221
  5. METHOTREXATE [Suspect]
     Active Substance: METHOTREXATE
     Dates: end: 20210311
  6. VINCRISTINE SULFATE [Suspect]
     Active Substance: VINCRISTINE SULFATE
     Dates: end: 20210221
  7. SPRYCEL [Suspect]
     Active Substance: DASATINIB
     Dates: end: 20210322

REACTIONS (4)
  - Diarrhoea haemorrhagic [None]
  - Oesophageal mucosa erythema [None]
  - Diverticulum [None]
  - Haemorrhoids [None]

NARRATIVE: CASE EVENT DATE: 20210322
